FAERS Safety Report 14318916 (Version 2)
Quarter: 2018Q3

REPORT INFORMATION
  Report Type: Spontaneous
  Country: SE (occurrence: SE)
  Receive Date: 20171222
  Receipt Date: 20180904
  Transmission Date: 20181010
  Serious: Yes (Hospitalization, Other)
  Sender: FDA-Public Use
  Company Number: SE-IPSEN BIOPHARMACEUTICALS, INC.-2017-15789

PATIENT
  Age: 53 Year
  Sex: Female
  Weight: 101 kg

DRUGS (7)
  1. LX1606 [Concomitant]
     Indication: CARCINOID SYNDROME
     Route: 048
     Dates: start: 20141107
  2. LANREOTIDE [Suspect]
     Active Substance: LANREOTIDE
     Indication: CARCINOID TUMOUR OF THE SMALL BOWEL
     Dosage: 120MG
     Route: 058
     Dates: start: 20091009
  3. BEHEPAN [Concomitant]
     Active Substance: HYDROXOCOBALAMIN
     Indication: VITAMIN B12 DEFICIENCY
     Route: 048
     Dates: start: 20090617
  4. LEVOTHYROXINE. [Concomitant]
     Active Substance: LEVOTHYROXINE
     Indication: HYPOTHYROIDISM
     Route: 048
     Dates: start: 200808
  5. PARACETAMOL [Concomitant]
     Active Substance: ACETAMINOPHEN
     Indication: ABDOMINAL PAIN
     Route: 048
     Dates: start: 20080701
  6. OCTREOTIDE. [Concomitant]
     Active Substance: OCTREOTIDE
     Indication: CARCINOID TUMOUR
     Route: 058
     Dates: start: 20090908
  7. PANCREONE [Concomitant]
     Indication: CARCINOID TUMOUR
     Route: 048
     Dates: start: 20121109

REACTIONS (12)
  - Constipation [Not Recovered/Not Resolved]
  - Abdominal pain upper [Unknown]
  - Back pain [Not Recovered/Not Resolved]
  - Haemorrhoids [Not Recovered/Not Resolved]
  - Inappropriate schedule of drug administration [Unknown]
  - Vitamin D deficiency [Not Recovered/Not Resolved]
  - Herpes zoster [Recovered/Resolved]
  - Metastases to bone [Not Recovered/Not Resolved]
  - Nausea [Not Recovered/Not Resolved]
  - Disease progression [Not Recovered/Not Resolved]
  - Calcium deficiency [Not Recovered/Not Resolved]
  - Diabetes mellitus [Not Recovered/Not Resolved]

NARRATIVE: CASE EVENT DATE: 2010
